FAERS Safety Report 16600454 (Version 2)
Quarter: 2019Q4

REPORT INFORMATION
  Report Type: Report from Study
  Country: IT (occurrence: IT)
  Receive Date: 20190720
  Receipt Date: 20191002
  Transmission Date: 20200122
  Serious: Yes (Other)
  Sender: FDA-Public Use
  Company Number: IT-ACCORD-139180

PATIENT
  Age: 39 Year
  Sex: Male

DRUGS (6)
  1. PANTOPRAZOLE [Suspect]
     Active Substance: PANTOPRAZOLE
     Route: 048
     Dates: start: 20190626, end: 20190626
  2. DELTACORTENE [Suspect]
     Active Substance: PREDNISONE
     Dosage: STRENGTH 5 MG
     Route: 048
     Dates: start: 20190626, end: 20190626
  3. SERTRALINE [Suspect]
     Active Substance: SERTRALINE HYDROCHLORIDE
     Route: 048
     Dates: start: 20190626, end: 20190626
  4. RIFACOL [Suspect]
     Active Substance: RIFAXIMIN
     Dates: start: 20190626, end: 20190626
  5. DELORAZEPAM [Suspect]
     Active Substance: DELORAZEPAM
     Route: 048
     Dates: start: 20190626, end: 20190626
  6. CETIRIZINE [Suspect]
     Active Substance: CETIRIZINE HYDROCHLORIDE
     Route: 048
     Dates: start: 20190626, end: 20190626

REACTIONS (3)
  - Hypoaesthesia [Recovering/Resolving]
  - Poverty of speech [Recovering/Resolving]
  - Drug abuse [Unknown]

NARRATIVE: CASE EVENT DATE: 20190626
